FAERS Safety Report 17404163 (Version 1)
Quarter: 2020Q1

REPORT INFORMATION
  Report Type: Spontaneous
  Country: FR (occurrence: FR)
  Receive Date: 20200211
  Receipt Date: 20200211
  Transmission Date: 20200409
  Serious: Yes (Hospitalization)
  Sender: FDA-Public Use
  Company Number: FR-MYLANLABS-2020M1015384

PATIENT
  Age: 34 Year
  Sex: Female
  Weight: 62 kg

DRUGS (7)
  1. ANAUSIN METOCLOPRAMIDE [Concomitant]
     Active Substance: METOCLOPRAMIDE HYDROCHLORIDE
     Indication: PROPHYLAXIS OF NAUSEA AND VOMITING
     Dosage: 30 MILLIGRAM, QD
     Route: 048
  2. ENDOXAN                            /00021102/ [Suspect]
     Active Substance: CYCLOPHOSPHAMIDE
     Indication: BREAST CANCER
     Dosage: UNK
     Route: 042
     Dates: start: 20191122
  3. MOPRAL                             /00661202/ [Concomitant]
     Indication: PROPHYLAXIS OF NAUSEA AND VOMITING
     Dosage: 20 MILLIGRAM, QD
     Route: 048
  4. EMEND [Concomitant]
     Active Substance: APREPITANT
     Indication: PROPHYLAXIS OF NAUSEA AND VOMITING
     Dosage: UNK
  5. NEULASTA [Concomitant]
     Active Substance: PEGFILGRASTIM
     Indication: PROPHYLAXIS OF NAUSEA AND VOMITING
     Dosage: UNK
     Route: 058
  6. EPIRUBICIN [Suspect]
     Active Substance: EPIRUBICIN
     Indication: BREAST CANCER
     Dosage: UNK
     Route: 042
     Dates: start: 20191122
  7. SOLUPRED                           /00016217/ [Concomitant]
     Active Substance: PREDNISOLONE SODIUM METAZOATE
     Indication: PROPHYLAXIS OF NAUSEA AND VOMITING
     Dosage: 40 MILLIGRAM, QD
     Route: 048

REACTIONS (1)
  - Cerebral venous thrombosis [Not Recovered/Not Resolved]

NARRATIVE: CASE EVENT DATE: 20191122
